FAERS Safety Report 25626972 (Version 1)
Quarter: 2025Q3

REPORT INFORMATION
  Report Type: Spontaneous
  Country: US (occurrence: US)
  Receive Date: 20250731
  Receipt Date: 20250731
  Transmission Date: 20251021
  Serious: Yes (Hospitalization, Other)
  Sender: SHILPA MEDICARE
  Company Number: US-KOANAAP-SML-US-2025-00351

PATIENT
  Age: 83 Year
  Sex: Male

DRUGS (1)
  1. GEMCITABINE [Suspect]
     Active Substance: GEMCITABINE
     Indication: Non-small cell lung cancer
     Dates: start: 202209

REACTIONS (8)
  - Fall [Unknown]
  - Rhabdomyolysis [Unknown]
  - Dysmetria [Unknown]
  - Metastases to meninges [Unknown]
  - Mental status changes [Unknown]
  - Seizure [Unknown]
  - Drug ineffective [Unknown]
  - Disease progression [Unknown]
